FAERS Safety Report 6603805-1 (Version None)
Quarter: 2010Q1

REPORT INFORMATION
  Report Type: 
  Country: None (occurrence: None)
  Receive Date: 20100226
  Receipt Date: 20090206
  Transmission Date: 20100710
  Serious: No
  Sender: FDA-Public Use
  Company Number: A0767236A

PATIENT
  Age: 62 Year
  Sex: Male

DRUGS (8)
  1. LAMICTAL CD [Suspect]
     Indication: ANXIETY
     Dosage: 200MG PER DAY
     Route: 048
     Dates: end: 20090202
  2. INSULIN [Concomitant]
  3. LISINOPRIL [Concomitant]
  4. SIMVASTATIN [Concomitant]
  5. FISH OIL [Concomitant]
  6. CALCIUM SUPPLEMENTS [Concomitant]
  7. ZYRTEC [Concomitant]
  8. ALBUTEROL [Concomitant]

REACTIONS (2)
  - CONTUSION [None]
  - RASH MACULAR [None]
